FAERS Safety Report 8681779 (Version 3)
Quarter: 2012Q4

REPORT INFORMATION
  Report Type: 
  Country: NZ (occurrence: NZ)
  Receive Date: 20120725
  Receipt Date: 20121003
  Transmission Date: 20130627
  Serious: Yes (Hospitalization)
  Sender: FDA-Public Use
  Company Number: NZ-SANOFI-AVENTIS-2012SA050738

PATIENT
  Age: 61 Year
  Sex: Female

DRUGS (1)
  1. ARAVA [Suspect]
     Indication: DRUG USE FOR UNKNOWN INDICATION
     Route: 065
     Dates: start: 20110809, end: 20111031

REACTIONS (5)
  - Cerebral vasoconstriction [Unknown]
  - Headache [Unknown]
  - Hypertension [Unknown]
  - Nerve compression [Unknown]
  - Sciatica [Unknown]
